FAERS Safety Report 17454151 (Version 1)
Quarter: 2020Q1

REPORT INFORMATION
  Report Type: Spontaneous
  Country: US (occurrence: US)
  Receive Date: 20200211
  Receipt Date: 20200211
  Transmission Date: 20200409
  Serious: Yes (Disabling, Other)
  Sender: FDA-Public Use
  Company Number: None

PATIENT
  Age: 55 Year
  Sex: Male
  Weight: 77.11 kg

DRUGS (1)
  1. DALFAMPRIDINE ER 10MG TABLETS [Suspect]
     Active Substance: DALFAMPRIDINE
     Indication: MULTIPLE SCLEROSIS
     Dosage: ?          QUANTITY:1 TABLET ;OTHER FREQUENCY:EVERY 12 HRS;?
     Route: 048
     Dates: start: 20190701

REACTIONS (5)
  - Treatment failure [None]
  - Fall [None]
  - Product substitution issue [None]
  - Gait disturbance [None]
  - Insurance issue [None]

NARRATIVE: CASE EVENT DATE: 20190701
